FAERS Safety Report 9959342 (Version 1)
Quarter: 2014Q1

REPORT INFORMATION
  Report Type: Report from Study
  Country: US (occurrence: US)
  Receive Date: 20140305
  Receipt Date: 20140305
  Transmission Date: 20141002
  Serious: No
  Sender: FDA-Public Use
  Company Number: US-ABBVIE-13P-163-1102567-00

PATIENT
  Sex: Male
  Weight: 106.69 kg

DRUGS (5)
  1. HUMIRA [Suspect]
     Indication: PSORIATIC ARTHROPATHY
     Dates: start: 2012, end: 2012
  2. HUMIRA [Suspect]
     Dates: start: 2013
  3. ZIAC [Concomitant]
     Indication: HYPERTENSION
  4. UNKNOWN SLEEP AIDE [Concomitant]
     Indication: INSOMNIA
  5. HYDROCODONE [Concomitant]
     Indication: PAIN

REACTIONS (4)
  - Staphylococcal infection [Recovered/Resolved]
  - Pain [Recovered/Resolved]
  - Drug ineffective [Recovered/Resolved]
  - Furuncle [Recovered/Resolved]
